FAERS Safety Report 24367144 (Version 1)
Quarter: 2024Q3

REPORT INFORMATION
  Report Type: Report from Study
  Country: ZA (occurrence: ZA)
  Receive Date: 20240926
  Receipt Date: 20240926
  Transmission Date: 20241017
  Serious: Yes (Hospitalization)
  Sender: TAKEDA
  Company Number: ZA-TAKEDA-2024TUS091886

PATIENT
  Sex: Female

DRUGS (3)
  1. VEDOLIZUMAB [Suspect]
     Active Substance: VEDOLIZUMAB
     Indication: Colitis ulcerative
     Dosage: 300 MILLIGRAM
     Route: 042
     Dates: start: 20240610
  2. ASACOL [Concomitant]
     Active Substance: MESALAMINE
     Dosage: 50 MILLIGRAM
  3. PENTASA [Concomitant]
     Active Substance: MESALAMINE
     Dosage: 2 GRAM

REACTIONS (3)
  - Diarrhoea [Not Recovered/Not Resolved]
  - Infection [Unknown]
  - Malaise [Not Recovered/Not Resolved]
